FAERS Safety Report 21656656 (Version 1)
Quarter: 2022Q4

REPORT INFORMATION
  Report Type: Spontaneous
  Country: US (occurrence: US)
  Receive Date: 20221129
  Receipt Date: 20221129
  Transmission Date: 20230112
  Serious: No
  Sender: FDA-Public Use
  Company Number: US-SA-SAC20221128000188

PATIENT
  Age: 62 Year
  Sex: Female

DRUGS (1)
  1. DUPIXENT [Suspect]
     Active Substance: DUPILUMAB
     Indication: Asthma
     Dosage: DOSE: 300MG2ML FREQ: 300 MG/2ML: INJECT 1 PEN UNDER THE SKIN (SUBCUTANEOUS INJECTION) EVERY OTHER WE
     Route: 058
     Dates: start: 20220702

REACTIONS (4)
  - COVID-19 [Unknown]
  - Infection [Unknown]
  - Hyperhidrosis [Unknown]
  - Chills [Unknown]
